FAERS Safety Report 16933021 (Version 1)
Quarter: 2019Q4

REPORT INFORMATION
  Report Type: Spontaneous
  Country: US (occurrence: US)
  Receive Date: 20191018
  Receipt Date: 20191018
  Transmission Date: 20200122
  Serious: Yes (Hospitalization)
  Sender: FDA-Public Use
  Company Number: US-TEVA-2019-US-1122843

PATIENT
  Sex: Female

DRUGS (2)
  1. ESCITALOPRAM TEVA [Suspect]
     Active Substance: ESCITALOPRAM OXALATE
     Indication: PANIC DISORDER
     Dates: start: 20190925
  2. ESCITALOPRAM TEVA [Suspect]
     Active Substance: ESCITALOPRAM OXALATE
     Indication: POST-TRAUMATIC STRESS DISORDER
     Dates: start: 2012

REACTIONS (8)
  - Peripheral vascular disorder [Unknown]
  - Dizziness [Unknown]
  - Impaired work ability [Unknown]
  - Product quality issue [Unknown]
  - Decreased appetite [Unknown]
  - Chest discomfort [Unknown]
  - Abdominal discomfort [Unknown]
  - Nausea [Unknown]

NARRATIVE: CASE EVENT DATE: 201909
